FAERS Safety Report 5257203-6 (Version None)
Quarter: 2007Q1

REPORT INFORMATION
  Report Type: 
  Country: None (occurrence: None)
  Receive Date: 20070307
  Receipt Date: 20070226
  Transmission Date: 20070707
  Serious: Yes (Hospitalization)
  Sender: FDA-Public Use
  Company Number: FR-GLAXOSMITHKLINE-B0460037A

PATIENT
  Age: 51 Year
  Sex: Male

DRUGS (2)
  1. AUGMENTIN [Suspect]
     Route: 065
     Dates: start: 20070205, end: 20070206
  2. OXACILLINE [Suspect]
     Route: 065
     Dates: start: 20070207, end: 20070209

REACTIONS (3)
  - BLOOD BILIRUBIN INCREASED [None]
  - HEPATIC ENZYME INCREASED [None]
  - LIVER DISORDER [None]
